FAERS Safety Report 15609988 (Version 2)
Quarter: 2019Q3

REPORT INFORMATION
  Report Type: Report from Study
  Country: IT (occurrence: IT)
  Receive Date: 20181113
  Receipt Date: 20190924
  Transmission Date: 20191004
  Serious: Yes (Death, Other)
  Sender: FDA-Public Use
  Company Number: IT-ACCORD-091533

PATIENT
  Age: 68 Year
  Sex: Female

DRUGS (8)
  1. ZOLEDRONIC ACID [Concomitant]
     Active Substance: ZOLEDRONIC ACID
     Indication: NEUROENDOCRINE BREAST TUMOUR
     Dates: start: 201107, end: 201305
  2. CYCLOPHOSPHAMIDE/CYCLOPHOSPHAMIDE MONOHYDRATE [Suspect]
     Active Substance: CYCLOPHOSPHAMIDE
     Indication: NEUROENDOCRINE BREAST TUMOUR
     Dates: start: 201306, end: 201311
  3. DOXORUBICIN [Suspect]
     Active Substance: DOXORUBICIN
     Indication: NEUROENDOCRINE BREAST TUMOUR
     Dates: start: 201306, end: 201311
  4. CAPECITABINE. [Suspect]
     Active Substance: CAPECITABINE
     Indication: NEUROENDOCRINE BREAST TUMOUR
     Dosage: 25% DOSE REDUCTION WAS PERFORMED
     Route: 048
     Dates: start: 201504, end: 2015
  5. VINCRISTINE [Suspect]
     Active Substance: VINCRISTINE
     Indication: NEUROENDOCRINE BREAST TUMOUR
     Dates: start: 201306, end: 201311
  6. CISPLATIN. [Suspect]
     Active Substance: CISPLATIN
     Indication: NEUROENDOCRINE BREAST TUMOUR
     Dosage: CYCLE
     Dates: start: 201011, end: 201103
  7. ETOPOSIDE. [Suspect]
     Active Substance: ETOPOSIDE
     Indication: NEUROENDOCRINE BREAST TUMOUR
     Dosage: CYCLE
     Dates: start: 201011, end: 201103
  8. TEMOZOLOMIDE. [Suspect]
     Active Substance: TEMOZOLOMIDE
     Indication: NEUROENDOCRINE BREAST TUMOUR
     Dosage: (200 MG/M2 ONCE DAILY, DAYS 10-14) EVERY 28 DAYS
     Dates: start: 201504, end: 2015

REACTIONS (6)
  - Off label use [Unknown]
  - Haematotoxicity [Unknown]
  - Fatigue [Unknown]
  - Cognitive disorder [Unknown]
  - Neurotoxicity [Unknown]
  - Thrombocytopenia [Unknown]

NARRATIVE: CASE EVENT DATE: 2013
